FAERS Safety Report 9715573 (Version 1)
Quarter: 2013Q4

REPORT INFORMATION
  Report Type: Spontaneous
  Country: CH (occurrence: CH)
  Receive Date: 20131127
  Receipt Date: 20131127
  Transmission Date: 20140711
  Serious: Yes (Hospitalization)
  Sender: FDA-Public Use
  Company Number: CH-ASTRAZENECA-2013SE85700

PATIENT
  Age: 77 Year
  Sex: Male
  Weight: 86 kg

DRUGS (15)
  1. SEROQUEL [Suspect]
     Indication: DEPRESSION
     Route: 048
     Dates: start: 20130909, end: 20130912
  2. SEROQUEL [Interacting]
     Indication: DEPRESSION
     Route: 048
     Dates: start: 20130913, end: 20130924
  3. SEROQUEL [Interacting]
     Indication: DEPRESSION
     Dosage: 50 MG 2X/DAY + 25 MG 1X/DAY
     Route: 048
     Dates: start: 20130925, end: 20130927
  4. SEROQUEL [Interacting]
     Indication: DEPRESSION
     Route: 048
     Dates: start: 20130928
  5. RILUTEK [Interacting]
     Indication: MOTOR NEURONE DISEASE
     Route: 065
     Dates: start: 2011
  6. TEMESTA [Concomitant]
     Indication: ANXIETY DISORDER
     Route: 048
     Dates: start: 20130829, end: 20130909
  7. TEMESTA [Concomitant]
     Indication: ANXIETY DISORDER
     Route: 048
     Dates: start: 20130910
  8. VENLAFAXINE [Concomitant]
     Indication: DEPRESSION
     Route: 048
     Dates: start: 20130903, end: 20130908
  9. VENLAFAXINE [Concomitant]
     Indication: DEPRESSION
     Route: 048
     Dates: start: 20130909, end: 20130912
  10. VENLAFAXINE [Concomitant]
     Indication: DEPRESSION
     Route: 048
     Dates: start: 20130913, end: 20130923
  11. VENLAFAXINE [Concomitant]
     Indication: DEPRESSION
     Route: 048
     Dates: start: 20130924, end: 20130926
  12. VENLAFAXINE [Concomitant]
     Indication: DEPRESSION
     Route: 048
     Dates: start: 20130927
  13. COSAAR [Concomitant]
     Indication: ESSENTIAL HYPERTENSION
     Route: 048
     Dates: start: 2011
  14. ZOLPIDEM [Concomitant]
     Indication: INSOMNIA
     Route: 048
     Dates: start: 2011
  15. REMERON [Concomitant]
     Indication: DEPRESSION
     Route: 048
     Dates: start: 201301, end: 20130903

REACTIONS (6)
  - Drug interaction [Unknown]
  - Paranoia [Recovering/Resolving]
  - Confusional state [Unknown]
  - Polymedication [Unknown]
  - Toxicity to various agents [Unknown]
  - Tachycardia [Unknown]
